FAERS Safety Report 9629564 (Version 6)
Quarter: 2014Q4

REPORT INFORMATION
  Report Type: Report from Study
  Country: US (occurrence: US)
  Receive Date: 20131017
  Receipt Date: 20141218
  Transmission Date: 20150529
  Serious: Yes (Hospitalization, Disabling)
  Sender: FDA-Public Use
  Company Number: US-AMGEN-USACT2013072747

PATIENT
  Age: 60 Year
  Sex: Female
  Weight: 55 kg

DRUGS (5)
  1. VITAMIN D                          /00107901/ [Concomitant]
     Active Substance: ERGOCALCIFEROL
     Dosage: 800 IU, UNK
     Route: 048
     Dates: start: 20130501
  2. VITAMIN E\VITAMINS [Concomitant]
     Active Substance: .ALPHA.-TOCOPHEROL\VITAMINS
     Dosage: UNK
     Route: 048
     Dates: start: 201205
  3. CALCIUM [Concomitant]
     Active Substance: CALCIUM
     Dosage: 1000 ML, UNK
     Route: 048
     Dates: start: 20130501
  4. MAGNESIUM [Concomitant]
     Active Substance: MAGNESIUM
     Dosage: 250 MG, UNK
     Route: 048
     Dates: start: 1995
  5. DENOSUMAB [Suspect]
     Active Substance: DENOSUMAB
     Indication: OSTEOPOROSIS POSTMENOPAUSAL
     Dosage: 60 MG, 1 ML, UNK
     Route: 058
     Dates: start: 20130503

REACTIONS (1)
  - Femur fracture [Recovered/Resolved]

NARRATIVE: CASE EVENT DATE: 20131010
